FAERS Safety Report 4820568-0 (Version None)
Quarter: 2005Q4

REPORT INFORMATION
  Report Type: 
  Country: None (occurrence: None)
  Receive Date: 20051102
  Receipt Date: 20051102
  Transmission Date: 20060501
  Serious: Yes (Hospitalization)
  Sender: FDA-Public Use
  Company Number: None

PATIENT
  Age: 79 Year
  Sex: Male
  Weight: 111 kg

DRUGS (9)
  1. METOPROLOL [Suspect]
     Indication: HYPERTENSION
     Dosage: 50MG BID
     Dates: start: 20050715, end: 20050916
  2. FELODIPINE [Suspect]
     Indication: HYPERTENSION
     Dosage: 10 MG QDAY
     Dates: start: 20050715, end: 20050916
  3. OXYBUTYNIN [Concomitant]
  4. SIMVASTATIN [Concomitant]
  5. NITROGLYCERIN [Concomitant]
  6. HUMALOG [Concomitant]
  7. LANTUS [Concomitant]
  8. CLOTRIMAZOLE CR [Concomitant]
  9. MICONAZOLE POWDER [Concomitant]

REACTIONS (4)
  - ASTHENIA [None]
  - EXTRASYSTOLES [None]
  - HEART RATE DECREASED [None]
  - TACHYCARDIA [None]
